FAERS Safety Report 10664931 (Version 1)
Quarter: 2014Q4

REPORT INFORMATION
  Report Type: Spontaneous
  Country: US (occurrence: US)
  Receive Date: 20141219
  Receipt Date: 20141219
  Transmission Date: 20150529
  Serious: Yes (Other)
  Sender: FDA-Public Use
  Company Number: US-CIPLA LTD.-2014IT02640

PATIENT

DRUGS (3)
  1. GRANULOCYTE GROWTH FACTOR [Concomitant]
     Indication: PROPHYLAXIS
     Dosage: DAY NINE OF A 21 DAY CYCLE
  2. GEMCITABINE [Suspect]
     Active Substance: GEMCITABINE\GEMCITABINE HYDROCHLORIDE
     Indication: LEIOMYOSARCOMA METASTATIC
     Dosage: 900 MG/M2 , DAYS ONE AND EIGHT
  3. DOCETAXEL. [Suspect]
     Active Substance: DOCETAXEL
     Indication: LEIOMYOSARCOMA METASTATIC
     Dosage: 100 MG/M2 ON DAY EIGHT

REACTIONS (3)
  - Pneumocystis jirovecii pneumonia [Recovering/Resolving]
  - Hypoxia [Recovering/Resolving]
  - Pulmonary toxicity [Recovering/Resolving]
